FAERS Safety Report 17236272 (Version 1)
Quarter: 2020Q1

REPORT INFORMATION
  Report Type: Spontaneous
  Country: BG (occurrence: BG)
  Receive Date: 20200106
  Receipt Date: 20200106
  Transmission Date: 20200409
  Serious: Yes (Other)
  Sender: FDA-Public Use
  Company Number: BG-AMGEN-BGRNI2019004034

PATIENT
  Age: 77 Year
  Sex: Female
  Weight: 75 kg

DRUGS (4)
  1. PACLITAXEL. [Suspect]
     Active Substance: PACLITAXEL
     Indication: HER-2 POSITIVE BREAST CANCER
     Dosage: 300 MILLIGRAM, Q4WK
     Route: 042
     Dates: start: 20180430
  2. BISOR [Concomitant]
     Dosage: UNK
     Route: 065
     Dates: start: 20090615
  3. NORDIPIN [Concomitant]
     Dosage: UNK
     Route: 065
     Dates: start: 20090615
  4. TRASTUZUMAB. [Suspect]
     Active Substance: TRASTUZUMAB
     Indication: HER-2 POSITIVE BREAST CANCER
     Dosage: 450 MILLIGRAM, Q4WK
     Route: 042
     Dates: start: 20180430

REACTIONS (1)
  - Hallucination [Recovered/Resolved]

NARRATIVE: CASE EVENT DATE: 20180707
